FAERS Safety Report 19489857 (Version 3)
Quarter: 2021Q4

REPORT INFORMATION
  Report Type: Spontaneous
  Country: US (occurrence: US)
  Receive Date: 20210704
  Receipt Date: 20211102
  Transmission Date: 20220303
  Serious: Yes (Hospitalization, Other)
  Sender: FDA-Public Use
  Company Number: US-AMGEN-USASP2021100577

PATIENT
  Sex: Male

DRUGS (3)
  1. OTEZLA [Suspect]
     Active Substance: APREMILAST
     Indication: Psoriatic arthropathy
     Dosage: 30 MILLIGRAM, BID
     Route: 048
     Dates: start: 20200606
  2. ALLOPURINOL [Concomitant]
     Active Substance: ALLOPURINOL
  3. CELECOXIB [Concomitant]
     Active Substance: CELECOXIB
     Dosage: UNK

REACTIONS (2)
  - Psoriatic arthropathy [Not Recovered/Not Resolved]
  - Diarrhoea [Not Recovered/Not Resolved]

NARRATIVE: CASE EVENT DATE: 20210101
